FAERS Safety Report 22050630 (Version 1)
Quarter: 2023Q1

REPORT INFORMATION
  Report Type: Spontaneous
  Country: FR (occurrence: None)
  Receive Date: 20230301
  Receipt Date: 20230301
  Transmission Date: 20230418
  Serious: Yes (Hospitalization)
  Sender: FDA-Public Use
  Company Number: 2023A048824

PATIENT
  Age: 54 Year
  Sex: Female

DRUGS (11)
  1. OMEPRAZOLE [Suspect]
     Active Substance: OMEPRAZOLE
  2. BROMAZEPAM [Suspect]
     Active Substance: BROMAZEPAM
  3. TRIMEPRAZINE [Suspect]
     Active Substance: TRIMEPRAZINE
  4. AMOXICILLIN [Suspect]
     Active Substance: AMOXICILLIN
  5. CANRENONE [Suspect]
     Active Substance: CANRENONE
  6. KETAMINE [Suspect]
     Active Substance: KETAMINE
  7. LORAZEPAM [Suspect]
     Active Substance: LORAZEPAM
  8. MIDAZOLAM [Suspect]
     Active Substance: MIDAZOLAM
  9. METFORMIN [Suspect]
     Active Substance: METFORMIN HYDROCHLORIDE
  10. MORPHINE [Suspect]
     Active Substance: MORPHINE
  11. VENLAFAXINE [Suspect]
     Active Substance: VENLAFAXINE HYDROCHLORIDE

REACTIONS (3)
  - Coma [Unknown]
  - Lactic acidosis [Unknown]
  - Toxicity to various agents [Unknown]
